FAERS Safety Report 6375720-2 (Version None)
Quarter: 2009Q3

REPORT INFORMATION
  Report Type: 
  Country: None (occurrence: None)
  Receive Date: 20090922
  Receipt Date: 20090922
  Transmission Date: 20100115
  Serious: Yes (Life-Threatening, Hospitalization)
  Sender: FDA-Public Use
  Company Number: None

PATIENT
  Age: 19 Year
  Sex: Female
  Weight: 53.0709 kg

DRUGS (1)
  1. MINOCYCLINE 50 MG CAPSULE WAT CVS [Suspect]
     Indication: ACNE
     Dosage: 1 CAPSULE TWICE DAILY
     Dates: start: 20090819, end: 20090902

REACTIONS (1)
  - DRUG HYPERSENSITIVITY [None]
